FAERS Safety Report 10632398 (Version 1)
Quarter: 2014Q4

REPORT INFORMATION
  Report Type: Spontaneous
  Country: PR (occurrence: PR)
  Receive Date: 20141205
  Receipt Date: 20141205
  Transmission Date: 20150529
  Serious: No
  Sender: FDA-Public Use
  Company Number: PR-BRISTOL-MYERS SQUIBB COMPANY-21282058

PATIENT
  Age: 59 Year
  Sex: Female

DRUGS (2)
  1. SIMPONI [Suspect]
     Active Substance: GOLIMUMAB
     Dates: start: 2010, end: 2010
  2. ORENCIA [Suspect]
     Active Substance: ABATACEPT
     Dates: start: 2010, end: 2010

REACTIONS (1)
  - Drug ineffective [Unknown]
